FAERS Safety Report 10515799 (Version 1)
Quarter: 2014Q4

REPORT INFORMATION
  Report Type: Spontaneous
  Country: US (occurrence: US)
  Receive Date: 20141014
  Receipt Date: 20141014
  Transmission Date: 20150528
  Serious: No
  Sender: FDA-Public Use
  Company Number: US-PFIZER INC-2014277814

PATIENT
  Sex: Female

DRUGS (1)
  1. LIPITOR [Suspect]
     Active Substance: ATORVASTATIN CALCIUM
     Dosage: 40 MG, SINGLE (ONLY ONE TIME)
     Dates: start: 20141006

REACTIONS (7)
  - Palpitations [Unknown]
  - Nausea [Unknown]
  - Muscular weakness [Unknown]
  - Chromaturia [Unknown]
  - Arthralgia [Unknown]
  - Insomnia [Unknown]
  - Agitation [Unknown]

NARRATIVE: CASE EVENT DATE: 201410
